FAERS Safety Report 9864659 (Version 3)
Quarter: 2014Q1

REPORT INFORMATION
  Report Type: Report from Study
  Country: US (occurrence: US)
  Receive Date: 20140203
  Receipt Date: 20140213
  Transmission Date: 20141002
  Serious: Yes (Hospitalization)
  Sender: FDA-Public Use
  Company Number: US-ONYX-2014-0186

PATIENT
  Age: 59 Year
  Sex: Female
  Weight: 70.4 kg

DRUGS (6)
  1. CARFILZOMIB [Suspect]
     Indication: PLASMA CELL MYELOMA
     Route: 042
     Dates: start: 20131203
  2. CARFILZOMIB [Suspect]
     Route: 042
     Dates: start: 20140128
  3. POMALIDOMIDE [Concomitant]
     Indication: PLASMA CELL MYELOMA
     Route: 048
     Dates: start: 20131203
  4. POMALIDOMIDE [Concomitant]
     Route: 048
     Dates: start: 20140128
  5. DEXAMETHASONE [Concomitant]
     Indication: PLASMA CELL MYELOMA
     Route: 048
     Dates: start: 20131203
  6. DEXAMETHASONE [Concomitant]
     Route: 048
     Dates: start: 20140128

REACTIONS (1)
  - Vertigo [Recovered/Resolved]
